FAERS Safety Report 6752192-7 (Version None)
Quarter: 2010Q2

REPORT INFORMATION
  Report Type: 
  Country: None (occurrence: None)
  Receive Date: 20100602
  Receipt Date: 20100525
  Transmission Date: 20101027
  Serious: Yes (Other)
  Sender: FDA-Public Use
  Company Number: US-ROXANE LABORATORIES, INC.-2010-RO-00669RO

PATIENT

DRUGS (1)
  1. LORAZEPAM [Suspect]

REACTIONS (2)
  - FALL [None]
  - INCORRECT DOSE ADMINISTERED [None]
